FAERS Safety Report 16046606 (Version 2)
Quarter: 2019Q1

REPORT INFORMATION
  Report Type: Spontaneous
  Country: US (occurrence: US)
  Receive Date: 20190307
  Receipt Date: 20190316
  Transmission Date: 20190418
  Serious: Yes (Life-Threatening, Hospitalization, Other)
  Sender: FDA-Public Use
  Company Number: US-TEVA-2019-US-1019681

PATIENT
  Age: 55 Year
  Sex: Male

DRUGS (2)
  1. BUPROPION. [Suspect]
     Active Substance: BUPROPION
     Indication: MAJOR DEPRESSION
     Route: 065
  2. SERTRALINE [Concomitant]
     Active Substance: SERTRALINE HYDROCHLORIDE
     Indication: MAJOR DEPRESSION
     Route: 065

REACTIONS (6)
  - Suicidal ideation [Recovered/Resolved]
  - Facial bones fracture [Recovering/Resolving]
  - Mania [Recovered/Resolved]
  - Affective disorder [Recovered/Resolved]
  - Intentional self-injury [Recovering/Resolving]
  - Gun shot wound [Recovering/Resolving]
